FAERS Safety Report 7280248-1 (Version None)
Quarter: 2011Q1

REPORT INFORMATION
  Report Type: 
  Country: None (occurrence: None)
  Receive Date: 20110208
  Receipt Date: 20110203
  Transmission Date: 20110831
  Serious: No
  Sender: FDA-Public Use
  Company Number: US-ROXANE LABORATORIES, INC.-2011-RO-00137RO

PATIENT
  Sex: Male

DRUGS (3)
  1. METOCLOPRAMIDE [Suspect]
     Dates: start: 20040301, end: 20060201
  2. REGLAN [Suspect]
     Dates: start: 20040301, end: 20060201
  3. METOCLOPRAMIDE [Suspect]
     Dates: start: 20040301, end: 20060201

REACTIONS (3)
  - EXTRAPYRAMIDAL DISORDER [None]
  - DYSTONIA [None]
  - TARDIVE DYSKINESIA [None]
